FAERS Safety Report 5206782-3 (Version None)
Quarter: 2006Q4

REPORT INFORMATION
  Report Type: 
  Country: None (occurrence: None)
  Receive Date: 20061027
  Receipt Date: 20060714
  Transmission Date: 20070319
  Serious: No
  Sender: FDA-Public Use
  Company Number: 012201

PATIENT
  Age: 42 Year
  Sex: Female

DRUGS (1)
  1. PRIALT [Suspect]
     Indication: COMPLEX REGIONAL PAIN SYNDROME
     Dosage: ONCE/HOUR, INTRATHECAL
     Route: 037

REACTIONS (1)
  - RASH [None]
